FAERS Safety Report 4471544-1 (Version None)
Quarter: 2004Q4

REPORT INFORMATION
  Report Type: 
  Country: None (occurrence: None)
  Receive Date: 20041012
  Receipt Date: 20041001
  Transmission Date: 20050328
  Serious: Yes (Hospitalization)
  Sender: FDA-Public Use
  Company Number: CH-ABBOTT-04P-151-0275721-00

PATIENT
  Age: 79 Year
  Sex: Female

DRUGS (2)
  1. KLACID ONE [Suspect]
     Indication: CAMPYLOBACTER INFECTION
     Route: 048
     Dates: start: 20040827, end: 20040829
  2. KLACID ONE [Suspect]
     Indication: DIARRHOEA INFECTIOUS

REACTIONS (4)
  - DEHYDRATION [None]
  - DRUG INEFFECTIVE [None]
  - GENERAL PHYSICAL HEALTH DETERIORATION [None]
  - VOMITING [None]
